FAERS Safety Report 12477542 (Version 1)
Quarter: 2016Q2

REPORT INFORMATION
  Report Type: Spontaneous
  Country: DE (occurrence: DE)
  Receive Date: 20160617
  Receipt Date: 20160617
  Transmission Date: 20160815
  Serious: Yes (Disabling)
  Sender: FDA-Public Use
  Company Number: DE-009507513-1606DEU008574

PATIENT
  Sex: Male

DRUGS (1)
  1. PROPECIA [Suspect]
     Active Substance: FINASTERIDE
     Indication: ALOPECIA
     Route: 048

REACTIONS (6)
  - Impaired work ability [Unknown]
  - Muscle atrophy [Unknown]
  - Alopecia [Unknown]
  - Insomnia [Unknown]
  - Malaise [Unknown]
  - Sexual dysfunction [Unknown]
